FAERS Safety Report 13588222 (Version 1)
Quarter: 2017Q2

REPORT INFORMATION
  Report Type: Spontaneous
  Country: US (occurrence: US)
  Receive Date: 20170528
  Receipt Date: 20170528
  Transmission Date: 20170830
  Serious: No
  Sender: FDA-Public Use
  Company Number: US-EMD SERONO-8158310

PATIENT
  Age: 27 Year
  Sex: Male

DRUGS (2)
  1. OVIDREL [Suspect]
     Active Substance: CHORIOGONADOTROPIN ALFA
     Dosage: FORM STRENGTH: 250 MICROGRAM/0.5 MILLILITER
     Route: 058
     Dates: start: 201705
  2. OVIDREL [Suspect]
     Active Substance: CHORIOGONADOTROPIN ALFA
     Indication: HYPOTHALAMO-PITUITARY DISORDER
     Dosage: FORM STRENGTH: 250 MICROGRAM/0.5 MILLILITER
     Route: 058
     Dates: start: 20170317

REACTIONS (2)
  - Incorrect dose administered [Not Recovered/Not Resolved]
  - Oedema peripheral [Not Recovered/Not Resolved]

NARRATIVE: CASE EVENT DATE: 201703
